FAERS Safety Report 9730029 (Version 1)
Quarter: 2013Q4

REPORT INFORMATION
  Report Type: Spontaneous
  Country: FR (occurrence: None)
  Receive Date: 20131203
  Receipt Date: 20131203
  Transmission Date: 20140711
  Serious: Yes (Hospitalization, Other)
  Sender: FDA-Public Use
  Company Number: 2013000314

PATIENT
  Age: 74 Year
  Sex: Female

DRUGS (7)
  1. ACEON [Suspect]
     Indication: HYPERTENSION
     Route: 048
     Dates: end: 20130916
  2. DETENSIEL [Suspect]
     Indication: HYPERTENSION
     Route: 048
     Dates: end: 20130916
  3. LASILIX (FUROSEMIDE) [Suspect]
     Indication: HYPERTENSION
     Route: 048
     Dates: end: 20130916
  4. LEVOTHYROX [Suspect]
     Indication: HYPOTHYROIDISM
     Dosage: 100 UG, QD, ORAL
     Route: 048
     Dates: end: 2013
  5. OMEPRAZOLE [Suspect]
     Indication: PRODUCT USED FOR UNKNOWN INDICATION
     Route: 048
     Dates: end: 20130916
  6. PRADAXA (DABIGATRAN ETEXILATE MESILATE) [Suspect]
     Indication: ATRIAL FIBRILLATION
     Route: 048
     Dates: start: 201303, end: 20130916
  7. TARDYFERON [Concomitant]

REACTIONS (10)
  - Blood creatinine decreased [None]
  - Normochromic normocytic anaemia [None]
  - Rectal haemorrhage [None]
  - Acute myocardial infarction [None]
  - Cardiac arrest [None]
  - Cardiogenic shock [None]
  - Coronary artery stenosis [None]
  - Ventricular hypokinesia [None]
  - Arteriosclerosis coronary artery [None]
  - Myocardial ischaemia [None]
